FAERS Safety Report 18556092 (Version 1)
Quarter: 2020Q4

REPORT INFORMATION
  Report Type: Spontaneous
  Country: US (occurrence: US)
  Receive Date: 20201127
  Receipt Date: 20201127
  Transmission Date: 20210114
  Serious: Yes (Hospitalization, Other)
  Sender: FDA-Public Use
  Company Number: US-009507513-2011USA015066

PATIENT
  Age: 64 Year
  Sex: Male
  Weight: 83.9 kg

DRUGS (21)
  1. FISH OIL [Concomitant]
     Active Substance: FISH OIL
     Dosage: 2 PILLS OR EQUIVALENT TO ONE GRAM
  2. ASPIRIN. [Concomitant]
     Active Substance: ASPIRIN
     Route: 048
  3. CYANOCOBALAMIN. [Concomitant]
     Active Substance: CYANOCOBALAMIN
     Dosage: MONTH
     Route: 050
  4. OMEGA-3 ACIDS [Concomitant]
     Active Substance: OMEGA-3 FATTY ACIDS
     Dosage: 2 PILLS OR EQUIVALENT TO ONE GRAM
  5. CRESTOR [Suspect]
     Active Substance: ROSUVASTATIN CALCIUM
     Dosage: 5 MILLIGRAM, QD
     Route: 048
     Dates: end: 201208
  6. BYSTOLIC [Concomitant]
     Active Substance: NEBIVOLOL HYDROCHLORIDE
     Indication: BLOOD PRESSURE MEASUREMENT
  7. PRINIVIL [Suspect]
     Active Substance: LISINOPRIL
     Route: 048
  8. BRILINTA [Suspect]
     Active Substance: TICAGRELOR
     Indication: STENT PLACEMENT
     Dosage: 180 MILLIGRAM, QD
     Route: 048
     Dates: start: 201112, end: 201203
  9. BRILINTA [Suspect]
     Active Substance: TICAGRELOR
     Indication: ARTERIAL OCCLUSIVE DISEASE
     Dosage: 180 MILLIGRAM, QD
     Route: 048
     Dates: start: 201112, end: 201203
  10. PLAVIX [Suspect]
     Active Substance: CLOPIDOGREL BISULFATE
  11. ORIGIN CO Q-10 [Concomitant]
  12. CYANOCOBALAMIN. [Concomitant]
     Active Substance: CYANOCOBALAMIN
     Dosage: 1000 MICROGRAM, QD
  13. CRESTOR [Suspect]
     Active Substance: ROSUVASTATIN CALCIUM
     Indication: BLOOD CHOLESTEROL INCREASED
     Dosage: 5 MILLIGRAM, QOD
     Route: 048
     Dates: start: 200901, end: 200903
  14. BRILINTA [Suspect]
     Active Substance: TICAGRELOR
     Dosage: 180 MILLIGRAM, QD
     Route: 048
     Dates: start: 201203
  15. CARNITENE [Concomitant]
  16. CHOLECALCIFEROL [Concomitant]
     Active Substance: CHOLECALCIFEROL
  17. CRESTOR [Suspect]
     Active Substance: ROSUVASTATIN CALCIUM
     Dosage: 5 MILLIGRAM, QD
     Route: 048
     Dates: start: 200903, end: 200910
  18. BRILINTA [Suspect]
     Active Substance: TICAGRELOR
     Dosage: 180 MILLIGRAM, QD
     Route: 048
     Dates: start: 201203
  19. CRESTOR [Suspect]
     Active Substance: ROSUVASTATIN CALCIUM
     Dosage: 2.5 MILLIGRAM, QD
     Route: 048
  20. CRESTOR [Suspect]
     Active Substance: ROSUVASTATIN CALCIUM
     Dosage: 2.5 MILLIGRAM, QOD
     Route: 048
  21. CALCIUM CARBONATE (+) SODIUM ALGINATE (+) SODIUM BICARBONATE [Concomitant]

REACTIONS (18)
  - Dyspnoea [Recovered/Resolved]
  - Myalgia [Unknown]
  - Dizziness [Unknown]
  - Abdominal discomfort [Unknown]
  - Urticaria [Unknown]
  - Chest pain [Unknown]
  - Weight increased [Unknown]
  - Burning sensation [Unknown]
  - Dyspepsia [Unknown]
  - Blood cholesterol increased [Unknown]
  - Nausea [Unknown]
  - Muscular weakness [Unknown]
  - Chest pain [Unknown]
  - Enzyme level increased [Unknown]
  - Coronary artery occlusion [Unknown]
  - Gastrooesophageal reflux disease [Unknown]
  - Hepatic enzyme increased [Unknown]
  - Intentional product misuse [Unknown]

NARRATIVE: CASE EVENT DATE: 2006
